FAERS Safety Report 7573536 (Version 3)
Quarter: 2013Q3

REPORT INFORMATION
  Report Type: Spontaneous
  Country: US (occurrence: US)
  Receive Date: 20100906
  Receipt Date: 20130925
  Transmission Date: 20140515
  Serious: Yes (Hospitalization, Other)
  Sender: FDA-Public Use
  Company Number: US-BIOGENIDEC-2010BI029967

PATIENT
  Age: 53 Year
  Sex: Female

DRUGS (2)
  1. TYSABRI [Suspect]
     Indication: MULTIPLE SCLEROSIS
     Route: 042
     Dates: start: 20070827, end: 20071119
  2. TYSABRI [Suspect]
     Indication: MULTIPLE SCLEROSIS
     Route: 042
     Dates: start: 20090925, end: 20100615

REACTIONS (9)
  - Hepato-lenticular degeneration [Not Recovered/Not Resolved]
  - Liver transplant [Recovered/Resolved]
  - Asthenia [Recovered/Resolved]
  - Hallucination, auditory [Recovered/Resolved]
  - Jaundice [Unknown]
  - Fatigue [Recovered/Resolved]
  - Dysgeusia [Recovered/Resolved]
  - Pneumonia [Unknown]
  - Speech disorder [Not Recovered/Not Resolved]
